FAERS Safety Report 10120103 (Version 2)
Quarter: 2014Q2

REPORT INFORMATION
  Report Type: Spontaneous
  Country: GB (occurrence: GB)
  Receive Date: 20140425
  Receipt Date: 20140513
  Transmission Date: 20141212
  Serious: Yes (Other)
  Sender: FDA-Public Use
  Company Number: GB-PFIZER INC-2014112177

PATIENT
  Age: 46 Year
  Sex: Male

DRUGS (2)
  1. LYRICA [Suspect]
     Indication: FRACTURE PAIN
     Dosage: 600 MG, DAILY
     Route: 048
  2. HEROIN [Suspect]

REACTIONS (3)
  - Overdose [Recovered/Resolved]
  - Drug abuse [Recovered/Resolved]
  - Withdrawal syndrome [Recovered/Resolved]
